FAERS Safety Report 18986539 (Version 1)
Quarter: 2021Q1

REPORT INFORMATION
  Report Type: Spontaneous
  Country: IS (occurrence: IS)
  Receive Date: 20210309
  Receipt Date: 20210309
  Transmission Date: 20210420
  Serious: Yes (Other)
  Sender: FDA-Public Use
  Company Number: IS-MYLANLABS-2021M1013874

PATIENT
  Sex: Male

DRUGS (3)
  1. XARELTO [Concomitant]
     Active Substance: RIVAROXABAN
     Dosage: 20 MILLIGRAM, QD
  2. ATENOLOL MYLAN 25 MG, TABLETTEN [Suspect]
     Active Substance: ATENOLOL
     Indication: CARDIAC DISORDER
     Dosage: 25 MILLIGRAM, QD (FOR 2 YEARS)
     Route: 048
  3. ATENOLOL MYLAN 25 MG, TABLETTEN [Suspect]
     Active Substance: ATENOLOL
     Dosage: 12.5 MILLIGRAM, QD (HALF TABLET NOW FOR 1 YEAR)
     Route: 048

REACTIONS (4)
  - Swelling [Recovering/Resolving]
  - Incorrect dose administered [Unknown]
  - Renal impairment [Unknown]
  - Oedema [Recovering/Resolving]
